FAERS Safety Report 9214391 (Version 2)
Quarter: 2013Q4

REPORT INFORMATION
  Report Type: Spontaneous
  Country: US (occurrence: US)
  Receive Date: 20130405
  Receipt Date: 20131114
  Transmission Date: 20140711
  Serious: Yes (Other)
  Sender: FDA-Public Use
  Company Number: US-BAYER-2013-040516

PATIENT
  Age: 28 Year
  Sex: Female

DRUGS (3)
  1. YAZ [Suspect]
     Dosage: UNK
     Dates: start: 20051211
  2. YASMIN [Suspect]
     Dosage: UNK
     Dates: start: 20051211
  3. OCELLA [Suspect]
     Dosage: UNK
     Dates: start: 20051211

REACTIONS (9)
  - Gallbladder disorder [None]
  - Cholecystitis [None]
  - Pain [None]
  - Injury [None]
  - General physical health deterioration [None]
  - Anxiety [None]
  - Emotional distress [None]
  - Pain [None]
  - Anhedonia [None]
